FAERS Safety Report 24358971 (Version 1)
Quarter: 2024Q3

REPORT INFORMATION
  Report Type: Spontaneous
  Country: US (occurrence: US)
  Receive Date: 20240924
  Receipt Date: 20240924
  Transmission Date: 20241016
  Serious: No
  Sender: SUNOVION
  Company Number: US-SUMITOMO PHARMA SWITZERLAND GMBH-2024SPA002132

PATIENT

DRUGS (3)
  1. GEMTESA [Suspect]
     Active Substance: VIBEGRON
     Indication: Incontinence
     Dosage: 75 MG
     Route: 065
  2. SYNTHROID [Concomitant]
     Active Substance: LEVOTHYROXINE SODIUM
     Indication: Glaucoma
     Dosage: 0.75 MG, QD
     Route: 065
  3. TIMOLOL [Concomitant]
     Active Substance: TIMOLOL
     Indication: Eye disorder
     Dosage: UNK, QD
     Route: 065

REACTIONS (5)
  - Dizziness [Unknown]
  - Ear disorder [Unknown]
  - Motion sickness [Unknown]
  - Balance disorder [Unknown]
  - Therapeutic product effect decreased [Unknown]
